FAERS Safety Report 9874387 (Version 4)
Quarter: 2014Q4

REPORT INFORMATION
  Report Type: Report from Study
  Country: CA (occurrence: CA)
  Receive Date: 20140206
  Receipt Date: 20141223
  Transmission Date: 20150529
  Serious: Yes (Other)
  Sender: FDA-Public Use
  Company Number: CA-ROCHE-1228308

PATIENT
  Age: 73 Year
  Sex: Male
  Weight: 65 kg

DRUGS (13)
  1. ACETAMINOPHEN. [Concomitant]
     Active Substance: ACETAMINOPHEN
     Indication: PREMEDICATION
     Route: 048
     Dates: start: 20090821
  2. LIPITOR [Concomitant]
     Active Substance: ATORVASTATIN CALCIUM
  3. PREDNISONE. [Concomitant]
     Active Substance: PREDNISONE
  4. NOVO-RISEDRONATE [Concomitant]
  5. BABY ASPIRIN [Concomitant]
     Active Substance: ASPIRIN
  6. MAVIK [Concomitant]
     Active Substance: TRANDOLAPRIL
  7. BIOCAL [Concomitant]
     Dosage: BIOCAL D FORTE
     Route: 065
  8. CARVEDILOL. [Concomitant]
     Active Substance: CARVEDILOL
  9. RITUXAN [Suspect]
     Active Substance: RITUXIMAB
     Indication: RHEUMATOID ARTHRITIS
     Route: 042
     Dates: start: 20071022
  10. SALAZOPYRIN [Concomitant]
     Active Substance: SULFASALAZINE
  11. DIPHENHYDRAMINE HCL [Concomitant]
     Active Substance: DIPHENHYDRAMINE HYDROCHLORIDE
     Indication: PREMEDICATION
     Route: 048
     Dates: start: 20090821
  12. METHYLPREDNISOLONE. [Concomitant]
     Active Substance: METHYLPREDNISOLONE
     Indication: PREMEDICATION
     Route: 042
     Dates: start: 20090821
  13. DESMOPRESSIN [Concomitant]
     Active Substance: DESMOPRESSIN
     Dosage: NOVO-DESMOPRESSIN
     Route: 065

REACTIONS (4)
  - Weight increased [Unknown]
  - Arthropathy [Unknown]
  - Infusion related reaction [Unknown]
  - Drug ineffective [Unknown]

NARRATIVE: CASE EVENT DATE: 20141218
